FAERS Safety Report 9880617 (Version 1)
Quarter: 2014Q1

REPORT INFORMATION
  Report Type: Spontaneous
  Country: US (occurrence: None)
  Receive Date: 20140206
  Receipt Date: 20140206
  Transmission Date: 20141002
  Serious: Yes (Other)
  Sender: FDA-Public Use
  Company Number: None

PATIENT
  Age: 69 Year
  Sex: Male
  Weight: 107.5 kg

DRUGS (3)
  1. ATORVASTATIN [Suspect]
     Indication: DIABETES MELLITUS
  2. ATORVASTATIN [Suspect]
     Indication: CORONARY ARTERY DISEASE
  3. ATORVASTATIN [Suspect]
     Indication: BLOOD CHOLESTEROL INCREASED

REACTIONS (2)
  - Asthenia [None]
  - Product substitution issue [None]
